FAERS Safety Report 5247743-8 (Version None)
Quarter: 2007Q1

REPORT INFORMATION
  Report Type: 
  Country: None (occurrence: None)
  Receive Date: 20070227
  Receipt Date: 20070214
  Transmission Date: 20070707
  Serious: Yes (Hospitalization, Other)
  Sender: FDA-Public Use
  Company Number: PHBS2007BR02940

PATIENT
  Age: 80 Year
  Sex: Female
  Weight: 98 kg

DRUGS (7)
  1. SLOW-K [Suspect]
     Indication: MUSCLE SPASMS
     Dosage: 1200 MG, BID
     Route: 048
  2. SLOW-K [Suspect]
     Dosage: 600 MG, BID
     Route: 048
  3. NORVASC [Concomitant]
     Indication: CARDIAC DISORDER
     Dosage: 1 TABLET/DAY
     Route: 048
  4. FUROSEMIDE [Concomitant]
     Dosage: 1 TABLET/DAY
     Route: 048
  5. VENALOT [Concomitant]
     Indication: THROMBOSIS
     Dosage: 1 TABLET/DAY
     Route: 048
  6. CINELIDE [Concomitant]
     Indication: PAIN IN EXTREMITY
     Dosage: 100 MG, QD
  7. DEOCIL [Concomitant]
     Indication: PAIN IN EXTREMITY
     Dosage: UNK, Q8H
     Route: 060

REACTIONS (8)
  - ALLERGIC BRONCHITIS [None]
  - BONE EROSION [None]
  - MUSCLE SPASMS [None]
  - OEDEMA PERIPHERAL [None]
  - PAIN [None]
  - PROSTHESIS IMPLANTATION [None]
  - THROMBOSIS [None]
  - WALKING AID USER [None]
